FAERS Safety Report 6718040-6 (Version None)
Quarter: 2010Q2

REPORT INFORMATION
  Report Type: 
  Country: None (occurrence: None)
  Receive Date: 20100510
  Receipt Date: 20100429
  Transmission Date: 20101027
  Serious: Yes (Other)
  Sender: FDA-Public Use
  Company Number: PHHY2010US28767

PATIENT
  Sex: Female

DRUGS (3)
  1. RECLAST [Suspect]
     Dosage: UNK
     Route: 042
     Dates: start: 20090101
  2. EVISTA [Concomitant]
     Indication: BONE DISORDER
  3. AVAPRO [Concomitant]
     Indication: BLOOD PRESSURE

REACTIONS (5)
  - ARTHRITIS [None]
  - BONE DISORDER [None]
  - HYPOKINESIA [None]
  - OEDEMA PERIPHERAL [None]
  - PAIN IN EXTREMITY [None]
